FAERS Safety Report 4469422-7 (Version None)
Quarter: 2004Q4

REPORT INFORMATION
  Report Type: 
  Country: None (occurrence: None)
  Receive Date: 20041008
  Receipt Date: 20040727
  Transmission Date: 20050328
  Serious: No
  Sender: FDA-Public Use
  Company Number: US-BRISTOL-MYERS SQUIBB COMPANY-12652988

PATIENT
  Age: 73 Year
  Sex: Male

DRUGS (1)
  1. AVAPRO [Suspect]
     Route: 048
     Dates: start: 20040628, end: 20040713

REACTIONS (2)
  - DIARRHOEA [None]
  - STOMACH DISCOMFORT [None]
